FAERS Safety Report 4774987-1 (Version None)
Quarter: 2005Q3

REPORT INFORMATION
  Report Type: 
  Country: None (occurrence: None)
  Receive Date: 20050920
  Receipt Date: 20050907
  Transmission Date: 20060218
  Serious: Yes (Other)
  Sender: FDA-Public Use
  Company Number: 2005125089

PATIENT
  Age: 85 Year
  Sex: Female

DRUGS (7)
  1. LYRICA [Suspect]
     Indication: NEUROPATHIC PAIN
     Dosage: 150 MG (75 MG 2 IN 1D )ORAL
     Route: 048
     Dates: start: 20050512, end: 20050513
  2. FUROSEMIDE [Concomitant]
  3. FOSAMAX [Concomitant]
  4. EMCONCOR (BISOPROLOL) [Concomitant]
  5. CALCICHEW-D3 (CALCIUM CARBONATE, COLECALCIFEROL) [Concomitant]
  6. MAREVAN FORTE (WARFARIN SODIUM) [Concomitant]
  7. RISPERDAL [Concomitant]

REACTIONS (2)
  - DEPRESSED LEVEL OF CONSCIOUSNESS [None]
  - SOMNOLENCE [None]
